FAERS Safety Report 4900888-1 (Version None)
Quarter: 2006Q1

REPORT INFORMATION
  Report Type: 
  Country: None (occurrence: None)
  Receive Date: 20060113
  Receipt Date: 20051201
  Transmission Date: 20060701
  Serious: No
  Sender: FDA-Public Use
  Company Number: 2005SP004221

PATIENT
  Age: 76 Year
  Sex: Female
  Weight: 61.2356 kg

DRUGS (3)
  1. LUNESTA [Suspect]
     Dosage: 2 MG;HS;ORAL, 2 MG;HS;ORAL
     Route: 048
     Dates: start: 20051117, end: 20051122
  2. LUNESTA [Suspect]
     Dosage: 2 MG;HS;ORAL, 2 MG;HS;ORAL
     Route: 048
     Dates: start: 20051129
  3. ATENOLOL [Concomitant]

REACTIONS (2)
  - DRUG INEFFECTIVE [None]
  - INSOMNIA [None]
